FAERS Safety Report 9842625 (Version 1)
Quarter: 2014Q1

REPORT INFORMATION
  Report Type: Spontaneous
  Country: US (occurrence: US)
  Receive Date: 20140124
  Receipt Date: 20140124
  Transmission Date: 20141002
  Serious: Yes (Other)
  Sender: FDA-Public Use
  Company Number: US-BRISTOL-MYERS SQUIBB COMPANY-20058384

PATIENT
  Age: 77 Year
  Sex: Male
  Weight: 86.17 kg

DRUGS (3)
  1. ELIQUIS [Suspect]
     Dates: start: 201311
  2. PLAVIX [Concomitant]
     Indication: CEREBROVASCULAR ACCIDENT
     Dates: end: 201311
  3. SIMVASTATIN [Concomitant]

REACTIONS (2)
  - Skin cancer [Unknown]
  - Dizziness [Unknown]
